FAERS Safety Report 17005087 (Version 1)
Quarter: 2019Q4

REPORT INFORMATION
  Report Type: Spontaneous
  Country: US (occurrence: US)
  Receive Date: 20191107
  Receipt Date: 20191107
  Transmission Date: 20200122
  Serious: Yes (Hospitalization, Other)
  Sender: FDA-Public Use
  Company Number: US-ENDO PHARMACEUTICALS INC-2019-109397

PATIENT
  Age: 54 Year
  Sex: Male

DRUGS (6)
  1. VASOSTRICT [Suspect]
     Active Substance: VASOPRESSIN
     Indication: SEPTIC SHOCK
     Dosage: 0.04 UNITS/MIN, MIN
     Route: 042
  2. VASOSTRICT [Suspect]
     Active Substance: VASOPRESSIN
     Dosage: THIRD RE-ADMINISTRATION UNK UNKNOWN, UNKNOWN
     Route: 042
  3. HYDROCORTISONE. [Concomitant]
     Active Substance: HYDROCORTISONE
     Indication: SHOCK
     Dosage: UNK UNKNOWN, UNKNOWN
     Route: 065
  4. VASOSTRICT [Suspect]
     Active Substance: VASOPRESSIN
     Dosage: SECOND RE-ADMINISTRATION UNK UNKNOWN, UNKNOWN
     Route: 042
  5. VASOSTRICT [Suspect]
     Active Substance: VASOPRESSIN
     Indication: SHOCK
     Dosage: FIRST RE-ADMINISTRATION UNK UNKNOWN, UNKNOWN
     Route: 042
  6. NOREPINEPHRINE                     /00127502/ [Concomitant]
     Active Substance: NOREPINEPHRINE BITARTRATE
     Indication: PRODUCT USED FOR UNKNOWN INDICATION
     Dosage: UNK UNKNOWN, UNKNOWN
     Route: 065

REACTIONS (1)
  - Diabetes insipidus [Recovered/Resolved]
